FAERS Safety Report 4616788-0 (Version None)
Quarter: 2005Q2

REPORT INFORMATION
  Report Type: 
  Country: None (occurrence: None)
  Receive Date: 20050311
  Receipt Date: 20050112
  Transmission Date: 20051028
  Serious: Yes (Hospitalization)
  Sender: FDA-Public Use
  Company Number: 2005-00044

PATIENT
  Age: 65 Year
  Sex: Female

DRUGS (5)
  1. VELCADE [Suspect]
     Indication: LYMPHOMA
     Dosage: 1.00 MG/M2, IV BOLUS
     Route: 040
     Dates: start: 20050103, end: 20050106
  2. DOXIL [Concomitant]
  3. DECADRON [Concomitant]
  4. MULTIVITAMINS (ERGOCALCIFEROL, ASCORBIC ACID, PANTHENOL, NICOTINAMIDE, [Concomitant]
  5. NEURONTIN [Concomitant]

REACTIONS (1)
  - PYREXIA [None]
